FAERS Safety Report 8164264-3 (Version None)
Quarter: 2012Q1

REPORT INFORMATION
  Report Type: 
  Country: None (occurrence: None)
  Receive Date: 20120224
  Receipt Date: 20111025
  Transmission Date: 20120608
  Serious: No
  Sender: FDA-Public Use
  Company Number: US-ASTRAZENECA-2011SE49942

PATIENT
  Age: 70 Year
  Sex: Female
  Weight: 98.9 kg

DRUGS (2)
  1. VIMOVO [Suspect]
     Indication: OSTEOARTHRITIS
     Dosage: 375 MG/20 MG, TWO TIMES A DAY
     Route: 048
  2. METHACAR [Concomitant]
     Indication: MUSCLE RELAXANT THERAPY

REACTIONS (2)
  - PAIN IN EXTREMITY [None]
  - DRUG INEFFECTIVE [None]
